FAERS Safety Report 23644949 (Version 1)
Quarter: 2024Q1

REPORT INFORMATION
  Report Type: Spontaneous
  Country: US (occurrence: US)
  Receive Date: 20240318
  Receipt Date: 20240318
  Transmission Date: 20240410
  Serious: Yes (Hospitalization, Other)
  Sender: FDA-Public Use
  Company Number: US-BRISTOL-MYERS SQUIBB COMPANY-2024-042821

PATIENT
  Age: 77 Year
  Sex: Female
  Weight: 82 kg

DRUGS (12)
  1. POMALYST [Suspect]
     Active Substance: POMALIDOMIDE
     Indication: Plasma cell myeloma
     Dosage: FREQUENCY: DAILY X 21 DAYS
     Route: 048
     Dates: start: 20231213
  2. SODIUM CHLORIDE [Concomitant]
     Active Substance: SODIUM CHLORIDE
  3. CENTRUM [ASCORBIC ACID;BETACAROTENE;BIOTIN;CALCIUM;CYANOCOBALAMIN;FOLI [Concomitant]
  4. ROSUVASTATIN [Concomitant]
     Active Substance: ROSUVASTATIN
  5. CYANOCOBALAMIN\DEXPANTHENOL\NIACINAMIDE\PYRIDOXINE HYDROCHLORIDE\RIBOF [Concomitant]
     Active Substance: CYANOCOBALAMIN\DEXPANTHENOL\NIACINAMIDE\PYRIDOXINE HYDROCHLORIDE\RIBOFLAVIN 5^-PHOSPHATE SODIUM\THIA
  6. ACYCLOVIR [Concomitant]
     Active Substance: ACYCLOVIR
  7. KCL [Concomitant]
     Active Substance: POTASSIUM CHLORIDE
  8. TYLENOL [Concomitant]
     Active Substance: ACETAMINOPHEN
  9. METOPROLOL SUCCINATE [Concomitant]
     Active Substance: METOPROLOL SUCCINATE
  10. FUROSEMIDE [Concomitant]
     Active Substance: FUROSEMIDE
  11. LOSARTAN [Concomitant]
     Active Substance: LOSARTAN
  12. ENOXAPARIN [Concomitant]
     Active Substance: ENOXAPARIN

REACTIONS (2)
  - Atrial fibrillation [Unknown]
  - International normalised ratio abnormal [Unknown]

NARRATIVE: CASE EVENT DATE: 20240227
